FAERS Safety Report 9267737 (Version 1)
Quarter: 2013Q2

REPORT INFORMATION
  Report Type: Other
  Country: FR (occurrence: FR)
  Receive Date: 20130502
  Receipt Date: 20130502
  Transmission Date: 20140414
  Serious: Yes (Other)
  Sender: FDA-Public Use
  Company Number: FR-ACTELION-A-CH2012-82607

PATIENT
  Age: 8 Year
  Sex: Female

DRUGS (1)
  1. ZAVESCA [Suspect]
     Indication: NIEMANN-PICK DISEASE
     Dosage: UNK
     Route: 048

REACTIONS (8)
  - Convulsion [Unknown]
  - Decreased appetite [Unknown]
  - Diarrhoea [Unknown]
  - Niemann-Pick disease [Unknown]
  - Condition aggravated [Unknown]
  - Cerebral atrophy [Unknown]
  - Drug intolerance [Unknown]
  - Product taste abnormal [Unknown]
